FAERS Safety Report 8928818 (Version 1)
Quarter: 2012Q4

REPORT INFORMATION
  Report Type: 
  Country: ES (occurrence: ES)
  Receive Date: 20121127
  Receipt Date: 20121127
  Transmission Date: 20130627
  Serious: Yes (Hospitalization)
  Sender: FDA-Public Use
  Company Number: ES-BAXTER-2012BAX024709

PATIENT
  Age: 91 Year

DRUGS (2)
  1. ARTISS [Suspect]
     Indication: MASTECTOMY
     Route: 061
     Dates: start: 20121109, end: 20121109
  2. SINTROM [Concomitant]
     Indication: TUMOR ULCERATION

REACTIONS (3)
  - Haematoma [Unknown]
  - Infection [Unknown]
  - Post procedural haemorrhage [Unknown]
